FAERS Safety Report 4973552-0 (Version None)
Quarter: 2006Q2

REPORT INFORMATION
  Report Type: 
  Country: None (occurrence: None)
  Receive Date: 20060414
  Receipt Date: 20060224
  Transmission Date: 20061013
  Serious: Yes (Hospitalization)
  Sender: FDA-Public Use
  Company Number: US-NOVOPROD-251168

PATIENT
  Age: 54 Year
  Sex: Female
  Weight: 140 kg

DRUGS (8)
  1. NOVOLOG [Suspect]
     Indication: INSULIN-REQUIRING TYPE II DIABETES MELLITUS
     Dosage: 10 - 12 UNITS, BID
     Route: 058
     Dates: start: 20051201
  2. ATENOLOL [Concomitant]
     Indication: HYPERTENSION
  3. GEMFIBROZIL [Concomitant]
     Indication: ILL-DEFINED DISORDER
     Dosage: UNK, BID
  4. FLONASE [Concomitant]
     Indication: ILL-DEFINED DISORDER
  5. ALBUTEROL [Concomitant]
     Indication: ASTHMA
  6. LANTUS [Concomitant]
     Indication: INSULIN-REQUIRING TYPE II DIABETES MELLITUS
  7. COZAAR [Concomitant]
     Indication: HYPERTENSION
  8. ESTRADIOL [Concomitant]
     Indication: ILL-DEFINED DISORDER

REACTIONS (9)
  - ASTHENIA [None]
  - ASTHMA [None]
  - DYSSTASIA [None]
  - HYPOAESTHESIA ORAL [None]
  - LOSS OF CONSCIOUSNESS [None]
  - OEDEMA MOUTH [None]
  - PNEUMONIA ASPIRATION [None]
  - SKIN BURNING SENSATION [None]
  - VISION BLURRED [None]
